FAERS Safety Report 23076635 (Version 1)
Quarter: 2023Q4

REPORT INFORMATION
  Report Type: Report from Study
  Country: BR (occurrence: BR)
  Receive Date: 20231017
  Receipt Date: 20231017
  Transmission Date: 20240110
  Serious: Yes (Other)
  Sender: FDA-Public Use
  Company Number: BR-JNJFOC-20231026137

PATIENT
  Age: 41 Year
  Sex: Female
  Weight: 73 kg

DRUGS (2)
  1. REMICADE [Suspect]
     Active Substance: INFLIXIMAB
     Indication: Rheumatoid arthritis
     Dosage: 4 DOSES
     Route: 041
     Dates: start: 20210722
  2. INFLIXIMAB [Suspect]
     Active Substance: INFLIXIMAB
     Indication: Rheumatoid arthritis
     Route: 065
     Dates: start: 202210

REACTIONS (8)
  - Enterocolitis haemorrhagic [Unknown]
  - Bipolar disorder [Unknown]
  - Psoriasis [Unknown]
  - Illness [Unknown]
  - Arthropathy [Unknown]
  - Bronchitis [Unknown]
  - Pain [Unknown]
  - Therapeutic response decreased [Unknown]

NARRATIVE: CASE EVENT DATE: 20221101
